FAERS Safety Report 5483557-1 (Version None)
Quarter: 2007Q4

REPORT INFORMATION
  Report Type: 
  Country: None (occurrence: None)
  Receive Date: 20071012
  Receipt Date: 20071002
  Transmission Date: 20080405
  Serious: Yes (Other)
  Sender: FDA-Public Use
  Company Number: DE-AMGEN-UK241528

PATIENT
  Sex: Female

DRUGS (4)
  1. KINERET [Suspect]
     Indication: JUVENILE ARTHRITIS
     Route: 058
     Dates: start: 20070129
  2. DECORTIN [Concomitant]
     Route: 048
     Dates: start: 20060514, end: 20070307
  3. OMEPRAZOLE [Concomitant]
     Dates: start: 20060514
  4. IBUPROFEN [Concomitant]
     Dates: start: 20060511

REACTIONS (3)
  - HYPERSENSITIVITY [None]
  - LYMPHADENOPATHY [None]
  - RASH [None]
